FAERS Safety Report 20482019 (Version 1)
Quarter: 2022Q1

REPORT INFORMATION
  Report Type: Report from Study
  Country: US (occurrence: US)
  Receive Date: 20220216
  Receipt Date: 20220216
  Transmission Date: 20220424
  Serious: Yes (Other)
  Sender: FDA-Public Use
  Company Number: US-JAZZ-2021-US-019632

PATIENT
  Sex: Male

DRUGS (1)
  1. ZEPZELCA [Suspect]
     Active Substance: LURBINECTEDIN
     Indication: Small cell lung cancer
     Dosage: UNK

REACTIONS (12)
  - Neuropathy peripheral [Unknown]
  - Lethargy [Unknown]
  - Weight decreased [Unknown]
  - Dizziness [Unknown]
  - Gynaecomastia [Unknown]
  - Sleep disorder [Unknown]
  - Fatigue [Unknown]
  - Decreased appetite [Unknown]
  - Nausea [Unknown]
  - Constipation [Unknown]
  - Diarrhoea [Unknown]
  - Paraesthesia [Unknown]
